FAERS Safety Report 5683430-X (Version None)
Quarter: 2008Q1

REPORT INFORMATION
  Report Type: 
  Country: None (occurrence: None)
  Receive Date: 20080327
  Receipt Date: 20080320
  Transmission Date: 20080703
  Serious: Yes (Death)
  Sender: FDA-Public Use
  Company Number: US-GENENTECH-253938

PATIENT
  Age: 74 Year
  Sex: Male

DRUGS (13)
  1. RITUXIMAB [Suspect]
     Indication: B-CELL LYMPHOMA
     Dosage: 375 MG/M2, UNK
     Route: 042
     Dates: start: 20060726
  2. FLUDARABINE [Suspect]
     Indication: B-CELL LYMPHOMA
     Dosage: 25 MG/M2, UNK
     Route: 042
     Dates: start: 20060726
  3. NOVANTRONE [Suspect]
     Indication: B-CELL LYMPHOMA
     Dosage: 10 MG/M2, UNK
     Route: 042
     Dates: start: 20060726
  4. DECADRON [Suspect]
     Indication: B-CELL LYMPHOMA
     Dosage: 20 MG, UNK
     Route: 048
     Dates: start: 20060726
  5. ABH [Concomitant]
     Indication: NAUSEA
     Dosage: UNK, PRN
  6. ALLOPURINOL [Concomitant]
     Indication: DRUG USE FOR UNKNOWN INDICATION
     Dosage: 100 UNK, QD
  7. ASPIRIN [Concomitant]
     Indication: DRUG USE FOR UNKNOWN INDICATION
     Dosage: 81 MG, QD
  8. BACTRIM DS [Concomitant]
     Indication: DRUG USE FOR UNKNOWN INDICATION
     Dosage: 1 TABLET, UNK
  9. DARVON [Concomitant]
     Indication: PAIN
     Dosage: 65 MG, PRN
  10. DILTIAZEM [Concomitant]
     Indication: DRUG USE FOR UNKNOWN INDICATION
     Dosage: 180 MG, QD
  11. DOXAZOSIN [Concomitant]
     Indication: PRURITUS
     Dosage: 4 MG, PRN
  12. VALTREX [Concomitant]
     Indication: DRUG USE FOR UNKNOWN INDICATION
     Dosage: 500 MG, QD
  13. ZOCOR [Concomitant]
     Indication: DRUG USE FOR UNKNOWN INDICATION
     Dosage: 20 MG, QD

REACTIONS (4)
  - DEATH [None]
  - MALAISE [None]
  - NEUTROPHIL COUNT DECREASED [None]
  - RETROPERITONEAL ABSCESS [None]
